FAERS Safety Report 17290337 (Version 3)
Quarter: 2020Q1

REPORT INFORMATION
  Report Type: Spontaneous
  Country: JP (occurrence: JP)
  Receive Date: 20200121
  Receipt Date: 20200309
  Transmission Date: 20200409
  Serious: Yes (Hospitalization, Other)
  Sender: FDA-Public Use
  Company Number: JP-BRISTOL-MYERS SQUIBB COMPANY-BMS-2020-004357

PATIENT
  Age: 71 Year
  Sex: Male
  Weight: 50.6 kg

DRUGS (1)
  1. OPDIVO [Suspect]
     Active Substance: NIVOLUMAB
     Indication: GASTRIC CANCER
     Dosage: 240  MILLIGRAM
     Route: 041
     Dates: start: 20190620

REACTIONS (7)
  - Fulminant type 1 diabetes mellitus [Unknown]
  - Cholangitis [Unknown]
  - Diabetic ketoacidosis [Recovering/Resolving]
  - Erythema [Unknown]
  - Depressed level of consciousness [Unknown]
  - Pyrexia [Unknown]
  - Dysarthria [Unknown]

NARRATIVE: CASE EVENT DATE: 20190704
